FAERS Safety Report 24186334 (Version 1)
Quarter: 2024Q3

REPORT INFORMATION
  Report Type: Report from Study
  Country: US (occurrence: None)
  Receive Date: 20240808
  Receipt Date: 20240808
  Transmission Date: 20241016
  Serious: Yes (Hospitalization, Other)
  Sender: ASTRAZENECA
  Company Number: 2021A854099

PATIENT
  Sex: Female

DRUGS (1)
  1. TAGRISSO [Suspect]
     Active Substance: OSIMERTINIB
     Indication: Lung neoplasm malignant
     Route: 048
     Dates: start: 202110

REACTIONS (6)
  - Fall [Unknown]
  - Pneumonia [Unknown]
  - Constipation [Unknown]
  - Fatigue [Unknown]
  - Nausea [Unknown]
  - Epistaxis [Unknown]
